FAERS Safety Report 5602896-4 (Version None)
Quarter: 2008Q1

REPORT INFORMATION
  Report Type: 
  Country: None (occurrence: None)
  Receive Date: 20080125
  Receipt Date: 20080116
  Transmission Date: 20080703
  Serious: Yes (Hospitalization)
  Sender: FDA-Public Use
  Company Number: NL-BOEHRINGER INGELHEIM PHARMACEUTICALS, INC.-2008-NL-00006NL

PATIENT
  Sex: Male

DRUGS (2)
  1. DIXARIT [Suspect]
     Indication: TOURETTE'S DISORDER
     Dates: start: 20070401
  2. DIXARIT [Suspect]
     Dates: start: 20070401

REACTIONS (5)
  - DIABETES MELLITUS [None]
  - MEDICATION ERROR [None]
  - POLYDIPSIA [None]
  - POLYURIA [None]
  - THIRST [None]
